FAERS Safety Report 4934056-4 (Version None)
Quarter: 2006Q1

REPORT INFORMATION
  Report Type: 
  Country: None (occurrence: None)
  Receive Date: 20060303
  Receipt Date: 20060220
  Transmission Date: 20060701
  Serious: Yes (Hospitalization)
  Sender: FDA-Public Use
  Company Number: 2004103877

PATIENT
  Age: 92 Year
  Sex: Male

DRUGS (7)
  1. CELEBREX [Suspect]
     Indication: ILL-DEFINED DISORDER
     Dosage: 20 MG (20 MG, 1 IN 1 D), ORAL
     Route: 048
     Dates: end: 20041104
  2. PROCHLORPERAZINE MALEATE [Concomitant]
  3. ALLOPURINOL [Concomitant]
  4. ZOPICLONE (ZOPICLONE) [Concomitant]
  5. GOSERELIN (GOSERELIN) [Concomitant]
  6. ISOSORBIDE DINITRATE [Concomitant]
  7. CODEINE PHOSPHATE AND ACETAMINOPHEN [Concomitant]

REACTIONS (2)
  - ACUTE MYOCARDIAL INFARCTION [None]
  - CONFUSIONAL STATE [None]
